FAERS Safety Report 13131848 (Version 4)
Quarter: 2017Q2

REPORT INFORMATION
  Report Type: Report from Study
  Country: US (occurrence: US)
  Receive Date: 20170119
  Receipt Date: 20170623
  Transmission Date: 20170830
  Serious: Yes (Death, Hospitalization)
  Sender: FDA-Public Use
  Company Number: US-ACTELION-A-US2017-148361

PATIENT
  Age: 78 Year
  Sex: Male

DRUGS (21)
  1. ATORVASTATIN [Concomitant]
     Active Substance: ATORVASTATIN
     Dosage: UNK
     Dates: start: 2015
  2. LEVOFLOXACIN. [Concomitant]
     Active Substance: LEVOFLOXACIN
  3. HEPARIN [Concomitant]
     Active Substance: HEPARIN SODIUM
  4. AZTREONAM. [Concomitant]
     Active Substance: AZTREONAM
  5. GLIMEPIRIDE. [Concomitant]
     Active Substance: GLIMEPIRIDE
     Dosage: UNK
     Dates: start: 20160505
  6. METHYLPREDNISOLONE. [Concomitant]
     Active Substance: METHYLPREDNISOLONE
     Dosage: INJECTION
  7. VELETRI [Suspect]
     Active Substance: EPOPROSTENOL
     Indication: PULMONARY HYPERTENSION
     Dosage: 20 NG/KG, PER MIN
     Route: 042
     Dates: end: 20170110
  8. INSULIN GLARGINE [Concomitant]
     Active Substance: INSULIN GLARGINE
     Dosage: UNK
     Dates: start: 201610
  9. AMIODARONE [Concomitant]
     Active Substance: AMIODARONE
  10. LORAZEPAM. [Concomitant]
     Active Substance: LORAZEPAM
     Dosage: INJECTION
  11. ATROPINE. [Concomitant]
     Active Substance: ATROPINE
     Dosage: 1 UNK, UNK
     Route: 060
  12. PANTOPRAZOLE [Concomitant]
     Active Substance: PANTOPRAZOLE
  13. VELETRI [Suspect]
     Active Substance: EPOPROSTENOL
     Dosage: UNK
     Route: 042
     Dates: start: 20150813
  14. OXYGEN. [Concomitant]
     Active Substance: OXYGEN
     Dosage: 4 L/MIN, UNK
     Route: 045
  15. WARFARIN [Concomitant]
     Active Substance: WARFARIN
  16. ONDANSETRON [Concomitant]
     Active Substance: ONDANSETRON
  17. DULCOLAX NOS [Concomitant]
     Active Substance: BISACODYL OR DOCUSATE SODIUM
  18. ACETAMINOPHEN. [Concomitant]
     Active Substance: ACETAMINOPHEN
     Dosage: SUPPOSITORY
  19. OPSUMIT [Suspect]
     Active Substance: MACITENTAN
     Indication: PULMONARY HYPERTENSION
     Dosage: 10 MG, QD
     Route: 048
     Dates: start: 20160226, end: 20170110
  20. GABAPENTIN. [Concomitant]
     Active Substance: GABAPENTIN
     Dosage: UNK
     Dates: start: 20160505
  21. MORPHINE [Concomitant]
     Active Substance: MORPHINE
     Route: 042

REACTIONS (7)
  - Chronic obstructive pulmonary disease [Fatal]
  - Oxygen saturation decreased [Unknown]
  - Respiratory failure [Fatal]
  - Pulmonary arterial hypertension [Fatal]
  - Cough [Fatal]
  - Acute respiratory failure [Fatal]
  - Dyspnoea [Fatal]

NARRATIVE: CASE EVENT DATE: 20161229
